FAERS Safety Report 10072537 (Version 3)
Quarter: 2014Q2

REPORT INFORMATION
  Report Type: Spontaneous
  Country: JP (occurrence: JP)
  Receive Date: 20140411
  Receipt Date: 20140527
  Transmission Date: 20141212
  Serious: Yes (Other)
  Sender: FDA-Public Use
  Company Number: JP-PFIZER INC-2014099860

PATIENT
  Age: 46 Year
  Sex: Male

DRUGS (1)
  1. HALCION [Suspect]
     Route: 048

REACTIONS (3)
  - Overdose [Unknown]
  - Rhabdomyolysis [Unknown]
  - Suicidal ideation [Unknown]
